FAERS Safety Report 17426014 (Version 3)
Quarter: 2020Q2

REPORT INFORMATION
  Report Type: Spontaneous
  Country: US (occurrence: US)
  Receive Date: 20200217
  Receipt Date: 20200428
  Transmission Date: 20200713
  Serious: Yes (Hospitalization, Other)
  Sender: FDA-Public Use
  Company Number: US-TASMAN PHARMA, INC.-2020TSM00018

PATIENT
  Age: 54 Year
  Sex: Male
  Weight: 68.93 kg

DRUGS (4)
  1. CLOZAPINE. [Suspect]
     Active Substance: CLOZAPINE
     Indication: BIPOLAR DISORDER
     Dosage: UNK
     Route: 048
     Dates: start: 2020, end: 2020
  2. CLOZAPINE. [Suspect]
     Active Substance: CLOZAPINE
     Indication: SCHIZOPHRENIA
     Dosage: UNK
     Route: 048
     Dates: end: 2020
  3. CLOZAPINE. [Suspect]
     Active Substance: CLOZAPINE
     Dosage: 400 MG, 1X/DAY IN THE MORNING
     Route: 048
     Dates: start: 2020, end: 2020
  4. CLOZAPINE. [Suspect]
     Active Substance: CLOZAPINE
     Dosage: 500 MG, 1X/DAY AT BEDTIME
     Route: 048

REACTIONS (9)
  - Psychiatric decompensation [Unknown]
  - Ankle fracture [Unknown]
  - Acute respiratory failure [Unknown]
  - Cardiomyopathy [Not Recovered/Not Resolved]
  - Right ventricular diastolic collapse [Unknown]
  - Cardiac failure congestive [Not Recovered/Not Resolved]
  - Pericardial effusion [Unknown]
  - Fall [Recovered/Resolved]
  - Shock [Unknown]

NARRATIVE: CASE EVENT DATE: 201912
